FAERS Safety Report 11982739 (Version 2)
Quarter: 2016Q1

REPORT INFORMATION
  Report Type: Spontaneous
  Country: FR (occurrence: FR)
  Receive Date: 20160201
  Receipt Date: 20160222
  Transmission Date: 20160526
  Serious: Yes (Hospitalization)
  Sender: FDA-Public Use
  Company Number: PHHY2016FR012437

PATIENT
  Sex: Female

DRUGS (1)
  1. FLUOCYNE [Suspect]
     Active Substance: FLUORESCEIN SODIUM
     Indication: ANGIOGRAM RETINA
     Dosage: 5 ML, ONCE/SINGLE (TOTAL)
     Route: 042
     Dates: start: 20160107, end: 20160107

REACTIONS (1)
  - Anaphylactic reaction [Recovered/Resolved]
